FAERS Safety Report 15128979 (Version 1)
Quarter: 2018Q3

REPORT INFORMATION
  Report Type: Spontaneous
  Country: US (occurrence: US)
  Receive Date: 20180614
  Receipt Date: 20180614
  Transmission Date: 20181010
  Serious: Yes (Hospitalization)
  Sender: FDA-Public Use
  Company Number: None

PATIENT
  Age: 29 Year
  Sex: Female
  Weight: 88.04 kg

DRUGS (1)
  1. DIMETHYL FUMARATE [Suspect]
     Active Substance: DIMETHYL FUMARATE
     Indication: MULTIPLE SCLEROSIS
     Route: 048
     Dates: start: 20180121, end: 20180212

REACTIONS (5)
  - Abdominal pain upper [None]
  - Hypoaesthesia oral [None]
  - Urticaria [None]
  - Pallor [None]
  - Condition aggravated [None]

NARRATIVE: CASE EVENT DATE: 20180212
